FAERS Safety Report 11273660 (Version 2)
Quarter: 2015Q3

REPORT INFORMATION
  Report Type: Spontaneous
  Country: JP (occurrence: JP)
  Receive Date: 20150715
  Receipt Date: 20150810
  Transmission Date: 20151125
  Serious: Yes (Hospitalization, Other)
  Sender: FDA-Public Use
  Company Number: JP-GE HEALTHCARE MEDICAL DIAGNOSTICS-OMPQ-PR-1507S-1086

PATIENT
  Age: 81 Year
  Sex: Male
  Weight: 58 kg

DRUGS (11)
  1. TRANSAMIN [Concomitant]
     Active Substance: TRANEXAMIC ACID
     Dates: start: 20150520
  2. NU-LOTAN [Concomitant]
     Active Substance: LOSARTAN POTASSIUM
     Dates: start: 20150611
  3. SITAGLIPTIN PHOSPHATE MONOHYDRATE [Concomitant]
     Dates: start: 20150611
  4. OMNIPAQUE [Suspect]
     Active Substance: IOHEXOL
     Indication: PRODUCT USED FOR UNKNOWN INDICATION
     Route: 042
     Dates: start: 20150703, end: 20150703
  5. MUCOSAL-L [Concomitant]
     Dates: start: 20150611
  6. HALFDIGOXIN [Concomitant]
     Active Substance: DIGOXIN
     Dates: start: 20150611
  7. MUCODYNE [Concomitant]
     Active Substance: CARBOCYSTEINE
     Dates: start: 20150611
  8. ARTIST [Concomitant]
     Active Substance: CARVEDILOL
     Dates: start: 20150611
  9. PREDNISOLONE. [Concomitant]
     Active Substance: PREDNISOLONE
     Dates: start: 20150520
  10. OMNIPAQUE [Suspect]
     Active Substance: IOHEXOL
     Indication: DIAGNOSTIC PROCEDURE
  11. RABEPRAZOLE [Concomitant]
     Active Substance: RABEPRAZOLE
     Dates: start: 20150611

REACTIONS (1)
  - Anaphylactic reaction [Recovering/Resolving]

NARRATIVE: CASE EVENT DATE: 20150703
